FAERS Safety Report 8925089 (Version 1)
Quarter: 2012Q4

REPORT INFORMATION
  Report Type: 
  Country: US (occurrence: US)
  Receive Date: 20121126
  Receipt Date: 20121126
  Transmission Date: 20130627
  Serious: Yes (Hospitalization)
  Sender: FDA-Public Use
  Company Number: US-ACTELION-A-NJ2012-75043

PATIENT
  Age: 56 Year
  Sex: Female

DRUGS (2)
  1. VELETRI [Suspect]
     Indication: PULMONARY ARTERIAL HYPERTENSION
     Dosage: UNK
     Route: 041
     Dates: start: 20120523, end: 20121116
  2. SILDENAFIL [Concomitant]

REACTIONS (1)
  - Lung transplant [Unknown]
